FAERS Safety Report 10421693 (Version 1)
Quarter: 2014Q3

REPORT INFORMATION
  Report Type: Spontaneous
  Country: US (occurrence: US)
  Receive Date: 20140901
  Receipt Date: 20140901
  Transmission Date: 20150326
  Serious: No
  Sender: FDA-Public Use
  Company Number: US-BIOGENIDEC-2014BI086213

PATIENT
  Sex: Female

DRUGS (1)
  1. TECFIDERA [Suspect]
     Active Substance: DIMETHYL FUMARATE
     Indication: MULTIPLE SCLEROSIS
     Route: 048

REACTIONS (6)
  - Dry eye [Unknown]
  - Weight increased [Unknown]
  - Arthralgia [Unknown]
  - Intentional underdose [Not Recovered/Not Resolved]
  - Flushing [Unknown]
  - Feeling hot [Unknown]
